FAERS Safety Report 7658525-1 (Version None)
Quarter: 2011Q3

REPORT INFORMATION
  Report Type: 
  Country: None (occurrence: None)
  Receive Date: 20110805
  Receipt Date: 20110721
  Transmission Date: 20111222
  Serious: Yes (Hospitalization, Other)
  Sender: FDA-Public Use
  Company Number: US-ELI_LILLY_AND_COMPANY-US201102001654

PATIENT
  Sex: Male

DRUGS (17)
  1. FORTEO [Suspect]
     Indication: OSTEOPOROSIS
     Dosage: 20 UG, QD
     Dates: start: 20100801, end: 20110327
  2. PROGRAS [Concomitant]
     Dosage: 5 MG, BID
  3. ASPIRIN [Concomitant]
     Dosage: 81 MG, QD
  4. MAGNESIUM PLUS                     /01486801/ [Concomitant]
  5. GARLIC [Concomitant]
  6. SYNTHROID [Concomitant]
     Dosage: .1 MG, QD
  7. LEXAPRO [Concomitant]
     Dosage: 40 MG, QD
  8. SEROQUEL [Concomitant]
     Dosage: 100 MG, QD
  9. PROTONIX [Concomitant]
     Dosage: 40 MG, QD
  10. FLOMAX [Concomitant]
     Dosage: .4 MG, QD
  11. PREDNISONE [Concomitant]
     Dosage: 5 MG, QD
  12. MULTI-VITAMIN [Concomitant]
  13. LACTOBACILLUS [Concomitant]
  14. NAC                                /00082801/ [Concomitant]
  15. BACTRIM [Concomitant]
  16. ACTIGALL [Concomitant]
     Dosage: 300 MG, TID
  17. OXYGEN [Concomitant]

REACTIONS (11)
  - DEHYDRATION [None]
  - TREMOR [None]
  - HAEMOCHROMATOSIS [None]
  - DRUG DOSE OMISSION [None]
  - URINARY TRACT INFECTION [None]
  - FEELING COLD [None]
  - INTENTIONAL DRUG MISUSE [None]
  - INCORRECT DOSE ADMINISTERED [None]
  - OVERDOSE [None]
  - BLOOD CREATININE INCREASED [None]
  - DIARRHOEA [None]
